FAERS Safety Report 4731957-7 (Version None)
Quarter: 2005Q3

REPORT INFORMATION
  Report Type: 
  Country: None (occurrence: None)
  Receive Date: 20050725
  Receipt Date: 20041108
  Transmission Date: 20060218
  Serious: Yes (Life-Threatening, Hospitalization, Disabling, Other)
  Sender: FDA-Public Use
  Company Number: WAES 0411USA01484

PATIENT
  Sex: Female
  Weight: 68.4932 kg

DRUGS (7)
  1. VIOXX [Suspect]
     Indication: OSTEOARTHRITIS
     Dosage: SEE IMAGE, PO
     Route: 048
     Dates: start: 20021202, end: 20030421
  2. VIOXX [Suspect]
     Indication: SPONDYLITIS
     Dosage: SEE IMAGE, PO
     Route: 048
     Dates: start: 20021202, end: 20030421
  3. VIOXX [Suspect]
     Indication: OSTEOARTHRITIS
     Dosage: SEE IMAGE, PO
     Route: 048
     Dates: start: 20030421, end: 20041025
  4. VIOXX [Suspect]
     Indication: SPONDYLITIS
     Dosage: SEE IMAGE, PO
     Route: 048
     Dates: start: 20030421, end: 20041025
  5. PRINIVIL [Concomitant]
  6. VICODIN ES [Concomitant]
  7. LOVASTATIN [Concomitant]

REACTIONS (7)
  - ARTHRALGIA [None]
  - BACK PAIN [None]
  - FATIGUE [None]
  - HYPERTENSION [None]
  - OEDEMA PERIPHERAL [None]
  - RENAL FAILURE [None]
  - URINARY TRACT INFECTION [None]
